FAERS Safety Report 25248584 (Version 2)
Quarter: 2025Q2

REPORT INFORMATION
  Report Type: Report from Study
  Country: US (occurrence: US)
  Receive Date: 20250429
  Receipt Date: 20250602
  Transmission Date: 20250717
  Serious: Yes (Hospitalization)
  Sender: AVADEL CNS PHARMACEUTICALS, LLC
  Company Number: US-AVADEL CNS PHARMACEUTICALS, LLC-2025AVA00760

PATIENT
  Sex: Female
  Weight: 68.934 kg

DRUGS (5)
  1. LUMRYZ [Suspect]
     Active Substance: SODIUM OXYBATE
     Indication: Narcolepsy
     Route: 048
     Dates: start: 20250312, end: 202503
  2. LUMRYZ [Suspect]
     Active Substance: SODIUM OXYBATE
     Indication: Narcolepsy
     Dosage: 9 G, ONCE NIGHTLY
     Route: 048
     Dates: start: 202503, end: 202503
  3. MAXALT [Concomitant]
     Active Substance: RIZATRIPTAN BENZOATE
  4. RISPERIDONE [Concomitant]
     Active Substance: RISPERIDONE
  5. SUNOSI [Concomitant]
     Active Substance: SOLRIAMFETOL

REACTIONS (15)
  - Schizoaffective disorder [Recovered/Resolved]
  - Insomnia [Recovered/Resolved]
  - Sleep terror [Recovered/Resolved]
  - Delusion [Recovered/Resolved]
  - Tachycardia [Recovered/Resolved]
  - Abnormal behaviour [Recovered/Resolved]
  - Feeling abnormal [Recovered/Resolved]
  - Terminal insomnia [Recovered/Resolved]
  - Aphasia [Recovered/Resolved]
  - Thyroid function test abnormal [Unknown]
  - Somnolence [Unknown]
  - Somnambulism [Recovered/Resolved]
  - Memory impairment [Recovered/Resolved]
  - Therapeutic response shortened [Recovered/Resolved]
  - Product administration interrupted [Recovered/Resolved]

NARRATIVE: CASE EVENT DATE: 20250101
